FAERS Safety Report 11155392 (Version 1)
Quarter: 2015Q2

REPORT INFORMATION
  Report Type: Spontaneous
  Country: US (occurrence: None)
  Receive Date: 20150601
  Receipt Date: 20150601
  Transmission Date: 20150821
  Serious: Yes (Hospitalization)
  Sender: FDA-Public Use
  Company Number: None

PATIENT
  Age: 53 Year
  Sex: Male
  Weight: 100.7 kg

DRUGS (11)
  1. INTELENCE [Suspect]
     Active Substance: ETRAVIRINE
     Indication: BACK PAIN
  2. NEXIUM [Concomitant]
     Active Substance: ESOMEPRAZOLE MAGNESIUM
  3. SULFAMETHOXAZOLE-TRIMETHOPRIM (SMZ) [Concomitant]
     Active Substance: SULFAMETHOXAZOLE\TRIMETHOPRIM
  4. EMTRICIT - TENOFOV [Suspect]
     Active Substance: EMTRICITABINE\TENOFOVIR
     Indication: BACK PAIN
  5. NEXIUM [Suspect]
     Active Substance: ESOMEPRAZOLE MAGNESIUM
     Indication: GASTROOESOPHAGEAL REFLUX DISEASE
  6. ISENTRESS [Suspect]
     Active Substance: RALTEGRAVIR POTASSIUM
     Indication: BACK PAIN
  7. EMTRICIT/TENOFOV-TRUVADA [Concomitant]
  8. SULFAMETHOXAZOLE AND TRIMETHOPRIM DOUBLE STRENGTH [Suspect]
     Active Substance: SULFAMETHOXAZOLE\TRIMETHOPRIM
     Indication: BACK PAIN
  9. EXTRAVIRINE-INTELENCE [Concomitant]
  10. RALTEGRAVIR-ISENTRESS [Concomitant]
  11. CYCLOBENZAPRINE [Suspect]
     Active Substance: CYCLOBENZAPRINE

REACTIONS (4)
  - Cellulitis [None]
  - Pain in extremity [None]
  - Myalgia [None]
  - Flank pain [None]

NARRATIVE: CASE EVENT DATE: 20140506
